FAERS Safety Report 6782364-7 (Version None)
Quarter: 2010Q2

REPORT INFORMATION
  Report Type: 
  Country: None (occurrence: None)
  Receive Date: 20100616
  Receipt Date: 20100607
  Transmission Date: 20101027
  Serious: Yes (Disabling)
  Sender: FDA-Public Use
  Company Number: 612501

PATIENT
  Age: 41 Year
  Sex: Male

DRUGS (2)
  1. PROMETHAZINE HCL [Suspect]
     Indication: BOWEL PREPARATION
     Dosage: INTRAVENOUS
     Route: 042
  2. PETHIDINE HYDROCHLORIDE [Concomitant]

REACTIONS (8)
  - COMPLEX REGIONAL PAIN SYNDROME [None]
  - DRUG TOXICITY [None]
  - ERYTHEMA [None]
  - HYPERAESTHESIA [None]
  - HYPERSENSITIVITY [None]
  - INJECTION SITE PAIN [None]
  - INJECTION SITE SWELLING [None]
  - NO THERAPEUTIC RESPONSE [None]
